FAERS Safety Report 5822979-3 (Version None)
Quarter: 2008Q3

REPORT INFORMATION
  Report Type: 
  Country: None (occurrence: None)
  Receive Date: 20080725
  Receipt Date: 20080722
  Transmission Date: 20090109
  Serious: Yes (Hospitalization, Other)
  Sender: FDA-Public Use
  Company Number: B0119237A

PATIENT
  Age: 67 Year
  Sex: Female
  Weight: 44.4 kg

DRUGS (9)
  1. VALTREX [Suspect]
     Indication: HERPES ZOSTER
     Dosage: 500MG TWICE PER DAY
     Route: 048
     Dates: start: 20010828, end: 20010831
  2. PREDNISOLONE [Concomitant]
     Indication: VASCULITIS
     Dosage: 5MG PER DAY
     Route: 048
  3. BUFFERIN [Concomitant]
     Indication: CEREBRAL INFARCTION
     Dosage: 81MG PER DAY
     Route: 048
  4. SIMVASTATIN [Concomitant]
     Dosage: 5MG PER DAY
     Route: 048
  5. CARVEDILOL [Concomitant]
     Indication: HYPERTENSION
     Dosage: 10MG PER DAY
     Route: 048
  6. PLETAL [Concomitant]
     Indication: CEREBRAL INFARCTION
     Dosage: 25MG TWICE PER DAY
     Route: 048
  7. SENNOSIDE [Concomitant]
     Indication: CONSTIPATION
     Dosage: 12MG PER DAY
     Route: 048
  8. NITROGLYCERIN [Concomitant]
     Indication: ANGINA PECTORIS
  9. DIALYSIS [Concomitant]
     Dates: start: 19940101

REACTIONS (10)
  - AGITATION [None]
  - ALTERED STATE OF CONSCIOUSNESS [None]
  - BEDRIDDEN [None]
  - COMA [None]
  - DELIRIUM [None]
  - DYSLALIA [None]
  - ENCEPHALOPATHY [None]
  - HALLUCINATION [None]
  - SPEECH DISORDER [None]
  - TOXIC ENCEPHALOPATHY [None]
